FAERS Safety Report 4567811-3 (Version None)
Quarter: 2005Q1

REPORT INFORMATION
  Report Type: 
  Country: None (occurrence: None)
  Receive Date: 20050202
  Receipt Date: 20050125
  Transmission Date: 20050727
  Serious: Yes (Hospitalization)
  Sender: FDA-Public Use
  Company Number: PHBS2005NL01349

PATIENT
  Age: 14 Year
  Sex: Male

DRUGS (1)
  1. LAMISIL [Suspect]
     Indication: NAIL TINEA
     Route: 048
     Dates: start: 20040802, end: 20040810

REACTIONS (5)
  - MYALGIA [None]
  - NAUSEA [None]
  - PYREXIA [None]
  - RASH [None]
  - VOMITING [None]
